FAERS Safety Report 7107307-8 (Version None)
Quarter: 2010Q4

REPORT INFORMATION
  Report Type: 
  Country: None (occurrence: None)
  Receive Date: 20101117
  Receipt Date: 20100112
  Transmission Date: 20110411
  Serious: Yes (Other)
  Sender: FDA-Public Use
  Company Number: US-ASTRAZENECA-2008UW22865

PATIENT
  Age: 19523 Day
  Sex: Male

DRUGS (10)
  1. SEROQUEL [Suspect]
     Route: 048
     Dates: start: 20030929
  2. SEROQUEL [Suspect]
     Route: 048
     Dates: end: 20070117
  3. NIASPAN [Concomitant]
     Dates: start: 20070216
  4. ADVICOR [Concomitant]
     Dates: start: 20070216
  5. AMBIEN [Concomitant]
     Dates: start: 20070216
  6. CYMBALTA [Concomitant]
     Dates: start: 20070216
  7. TOPROL-XL [Concomitant]
     Dates: start: 20070216
  8. DIOVAN [Concomitant]
     Dates: start: 20070216
  9. ACTOS [Concomitant]
     Dates: start: 20070216
  10. CELEBREX [Concomitant]
     Dates: start: 20070416

REACTIONS (3)
  - NEUROPATHY PERIPHERAL [None]
  - TYPE 1 DIABETES MELLITUS [None]
  - TYPE 2 DIABETES MELLITUS [None]
